FAERS Safety Report 15061552 (Version 1)
Quarter: 2018Q2

REPORT INFORMATION
  Report Type: Spontaneous
  Country: CN (occurrence: CN)
  Receive Date: 20180625
  Receipt Date: 20180625
  Transmission Date: 20180711
  Serious: Yes (Other)
  Sender: FDA-Public Use
  Company Number: CN-CMP PHARMA-2018CMP00015

PATIENT
  Age: 48 Year
  Sex: Female

DRUGS (1)
  1. TRIAMCINOLONE ACETONIDE. [Suspect]
     Active Substance: TRIAMCINOLONE ACETONIDE
     Indication: ENDOCRINE OPHTHALMOPATHY
     Dosage: 20 MG, UNK

REACTIONS (9)
  - Incorrect route of drug administration [Not Recovered/Not Resolved]
  - Blindness [Recovered/Resolved]
  - Retinal artery occlusion [Recovered/Resolved]
  - Retinal ischaemia [Recovering/Resolving]
  - Retinal oedema [Recovering/Resolving]
  - Eye pain [Unknown]
  - Conjunctival haemorrhage [Unknown]
  - Conjunctival oedema [Unknown]
  - Pupillary light reflex tests abnormal [Recovering/Resolving]
